FAERS Safety Report 9412419 (Version 1)
Quarter: 2013Q3

REPORT INFORMATION
  Report Type: Spontaneous
  Country: IT (occurrence: IT)
  Receive Date: 20130722
  Receipt Date: 20130722
  Transmission Date: 20140515
  Serious: Yes (Hospitalization)
  Sender: FDA-Public Use
  Company Number: IT-ELI_LILLY_AND_COMPANY-IT201307003205

PATIENT
  Age: 37 Year
  Sex: Female

DRUGS (11)
  1. XERISTAR [Suspect]
     Indication: SUICIDE ATTEMPT
     Dosage: 420 MG, SINGLE
     Route: 048
     Dates: start: 20130705, end: 20130705
  2. PARACETAMOL [Suspect]
     Indication: SUICIDE ATTEMPT
     Dosage: 5000 MG, SINGLE
     Route: 048
  3. DIAZEPAM [Suspect]
     Indication: SUICIDE ATTEMPT
     Dosage: 20 ML, SINGLE
     Route: 048
     Dates: start: 20130705, end: 20130706
  4. TOPAMAX [Suspect]
     Indication: SUICIDE ATTEMPT
     Dosage: 500 MG, SINGLE
     Route: 048
     Dates: start: 20130705, end: 20130705
  5. NATECAL D3 [Concomitant]
  6. FERROGRAD [Concomitant]
     Dosage: 1 DF, QD
  7. FOLINA [Concomitant]
  8. DEPAKINE CHRONO [Concomitant]
     Dosage: 2000 MG, UNK
  9. DEPAKINE CHRONO [Concomitant]
     Dosage: 1500 MG, QD
  10. CIPRALEX [Concomitant]
     Dosage: 10 MG, UNK
  11. PANTOPRAZOL [Concomitant]
     Dosage: 40 MG, QD

REACTIONS (3)
  - Toxicity to various agents [Recovered/Resolved]
  - Suicide attempt [Recovered/Resolved]
  - Agitation [Recovered/Resolved]
